FAERS Safety Report 11474066 (Version 1)
Quarter: 2015Q3

REPORT INFORMATION
  Report Type: Spontaneous
  Country: CA (occurrence: CA)
  Receive Date: 20150908
  Receipt Date: 20150908
  Transmission Date: 20151125
  Serious: No
  Sender: FDA-Public Use
  Company Number: CA-JAZZ-2014-CA-005471

PATIENT
  Sex: Female

DRUGS (13)
  1. XYREM [Suspect]
     Active Substance: SODIUM OXYBATE
     Dosage: 4 G, BID
     Route: 048
     Dates: start: 20130201
  2. XYREM [Suspect]
     Active Substance: SODIUM OXYBATE
     Dosage: 3 G, BID
     Route: 048
     Dates: start: 20121026, end: 2012
  3. XYREM [Suspect]
     Active Substance: SODIUM OXYBATE
     Dosage: 3.75 G, FIRST DOSE
     Route: 048
     Dates: start: 20130307
  4. XYREM [Suspect]
     Active Substance: SODIUM OXYBATE
     Dosage: 4.375 G, BID
     Route: 048
     Dates: start: 2014, end: 2014
  5. XYREM [Suspect]
     Active Substance: SODIUM OXYBATE
     Dosage: 5 G, BID
     Route: 048
  6. XYREM [Suspect]
     Active Substance: SODIUM OXYBATE
     Dosage: 2.25 G, QD
     Route: 048
  7. XYREM [Suspect]
     Active Substance: SODIUM OXYBATE
     Dosage: 3.8 G, BID
     Route: 048
     Dates: start: 20121204
  8. XYREM [Suspect]
     Active Substance: SODIUM OXYBATE
     Dosage: 5-8 G TOTAL NIGHTLY DOSE, DIVIDED IN TWO EQUAL DOSES
     Route: 048
     Dates: start: 20140110
  9. XYREM [Suspect]
     Active Substance: SODIUM OXYBATE
     Indication: CATAPLEXY
     Dosage: 2.25 G, BID
     Route: 048
     Dates: start: 201210, end: 2012
  10. XYREM [Suspect]
     Active Substance: SODIUM OXYBATE
     Dosage: 3.62 G, BID
     Route: 048
     Dates: start: 20121113
  11. XYREM [Suspect]
     Active Substance: SODIUM OXYBATE
     Dosage: 4.5 G, SECOND DOSE
     Route: 048
     Dates: start: 20130307
  12. XYREM [Suspect]
     Active Substance: SODIUM OXYBATE
     Dosage: 8.75 G UNKNOWN AMOUNT OF DIVIDED DOSES
     Route: 048
     Dates: start: 20140213
  13. XYREM [Suspect]
     Active Substance: SODIUM OXYBATE
     Dosage: 3-6 G TOTAL NIGHTLY DOSE DIVIDED IN TWO EQUAL DOSES
     Route: 048
     Dates: start: 20131114

REACTIONS (4)
  - Euphoric mood [Not Recovered/Not Resolved]
  - Drug ineffective [Not Recovered/Not Resolved]
  - Intentional product misuse [Unknown]
  - Somnolence [Unknown]
